FAERS Safety Report 18378067 (Version 3)
Quarter: 2020Q4

REPORT INFORMATION
  Report Type: Report from Study
  Country: DE (occurrence: DE)
  Receive Date: 20201013
  Receipt Date: 20201127
  Transmission Date: 20210114
  Serious: Yes (Hospitalization)
  Sender: FDA-Public Use
  Company Number: DE-CELGENEUS-DEU-20201002208

PATIENT
  Age: 59 Year
  Sex: Female
  Weight: 66 kg

DRUGS (6)
  1. AZACITIDINE. [Suspect]
     Active Substance: AZACITIDINE
     Indication: DUCTAL ADENOCARCINOMA OF PANCREAS
     Dosage: 53.7 MILLIGRAM
     Route: 058
     Dates: start: 20200720
  2. AZACITIDINE. [Suspect]
     Active Substance: AZACITIDINE
     Dosage: 53.7 MILLIGRAM
     Route: 058
     Dates: start: 20200818
  3. ABRAXANE [Suspect]
     Active Substance: PACLITAXEL
     Indication: DUCTAL ADENOCARCINOMA OF PANCREAS
     Dosage: 177.6 MILLIGRAM
     Route: 041
     Dates: start: 20200727
  4. GEMCITABINE. [Suspect]
     Active Substance: GEMCITABINE
     Indication: DUCTAL ADENOCARCINOMA OF PANCREAS
     Dosage: 1420.9 MILLIGRAM
     Route: 041
     Dates: start: 20200727
  5. ABRAXANE [Suspect]
     Active Substance: PACLITAXEL
     Dosage: 177.6 MILLIGRAM
     Route: 041
     Dates: start: 20201005
  6. GEMCITABINE. [Suspect]
     Active Substance: GEMCITABINE
     Dosage: 1420.9 MILLIGRAM
     Route: 041
     Dates: start: 20201005

REACTIONS (1)
  - Dysphagia [Recovered/Resolved]

NARRATIVE: CASE EVENT DATE: 20201008
